FAERS Safety Report 9369706 (Version 1)
Quarter: 2013Q2

REPORT INFORMATION
  Report Type: Spontaneous
  Country: US (occurrence: US)
  Receive Date: 20130626
  Receipt Date: 20130626
  Transmission Date: 20140414
  Serious: No
  Sender: FDA-Public Use
  Company Number: US-MYLANLABS-2012S1017735

PATIENT
  Age: 78 Year
  Sex: Female
  Weight: 84.82 kg

DRUGS (6)
  1. OMEPRAZOLE DELAYED-RELEASE CAPSULES, USP [Suspect]
     Indication: GASTROOESOPHAGEAL REFLUX DISEASE
     Route: 048
     Dates: start: 20120815, end: 20120830
  2. OMEPRAZOLE DELAYED-RELEASE CAPSULES, USP [Suspect]
     Indication: HIATUS HERNIA
     Route: 048
     Dates: start: 20120815, end: 20120830
  3. PRILOSEC [Suspect]
     Indication: GASTROOESOPHAGEAL REFLUX DISEASE
     Dates: start: 2012
  4. PRILOSEC [Suspect]
     Indication: HIATUS HERNIA
     Dates: start: 2012
  5. IRBESARTAN [Concomitant]
     Indication: HYPERTENSION
     Dates: start: 201207
  6. LORAZEPAM [Concomitant]
     Indication: INSOMNIA

REACTIONS (5)
  - Cough [Not Recovered/Not Resolved]
  - Abdominal pain upper [Recovered/Resolved]
  - Oropharyngeal pain [Recovered/Resolved]
  - Increased upper airway secretion [Recovered/Resolved]
  - Constipation [Recovered/Resolved]
